FAERS Safety Report 5979228-5 (Version None)
Quarter: 2008Q4

REPORT INFORMATION
  Report Type: 
  Country: None (occurrence: None)
  Receive Date: 20081204
  Receipt Date: 20081125
  Transmission Date: 20090506
  Serious: Yes (Other)
  Sender: FDA-Public Use
  Company Number: US-JNJFOC-20081200116

PATIENT
  Age: 6 Week
  Sex: Male
  Weight: 3.63 kg

DRUGS (3)
  1. INFANTS MYLICON NON-STAINING FORMULA [Suspect]
     Indication: FLATULENCE
     Dosage: FOR 3 WEEKS
     Route: 048
  2. AXID [Concomitant]
     Indication: PROPHYLAXIS
     Dosage: FOR ONE MONTH
  3. METOCLOPRAM [Concomitant]
     Indication: GASTROOESOPHAGEAL REFLUX DISEASE

REACTIONS (3)
  - HAEMATOCHEZIA [None]
  - PRODUCT QUALITY ISSUE [None]
  - VOMITING [None]
